FAERS Safety Report 15072908 (Version 3)
Quarter: 2019Q2

REPORT INFORMATION
  Report Type: Spontaneous
  Country: US (occurrence: US)
  Receive Date: 20180627
  Receipt Date: 20190402
  Transmission Date: 20190711
  Serious: Yes (Hospitalization, Other)
  Sender: FDA-Public Use
  Company Number: US-AMGEN-USASP2018085611

PATIENT
  Age: 70 Year
  Sex: Male
  Weight: 99.79 kg

DRUGS (9)
  1. ENBREL [Suspect]
     Active Substance: ETANERCEPT
     Indication: RHEUMATOID ARTHRITIS
     Dosage: 125 MG, QWK
     Route: 065
     Dates: start: 2016
  2. HUMIRA [Suspect]
     Active Substance: ADALIMUMAB
     Indication: PRODUCT USED FOR UNKNOWN INDICATION
     Dosage: 125 MG, QWK
     Route: 065
  3. FOLIC ACID. [Concomitant]
     Active Substance: FOLIC ACID
     Indication: RHEUMATOID ARTHRITIS
     Dosage: 1 MG BY MOUTH ONCE A DAY
     Dates: start: 201407
  4. HYDROXYCHLOROQUINE SULFATE. [Concomitant]
     Active Substance: HYDROXYCHLOROQUINE SULFATE
     Indication: RHEUMATOID ARTHRITIS
     Dosage: 200MG BY MOUTH TWICE A DAY
     Dates: start: 201407
  5. CYMBALTA [Concomitant]
     Active Substance: DULOXETINE HYDROCHLORIDE
     Indication: DEPRESSION
     Dosage: 30 MILLIGRAM, QD
     Route: 048
     Dates: start: 201706
  6. METHOTREXATE. [Concomitant]
     Active Substance: METHOTREXATE
     Indication: RHEUMATOID ARTHRITIS
     Dosage: 2.5 MG, 10 TABLETS BY MOUTH ONCE A WEEK
     Route: 048
     Dates: start: 201407
  7. CYMBALTA [Concomitant]
     Active Substance: DULOXETINE HYDROCHLORIDE
     Indication: PAIN
  8. ORENCIA [Suspect]
     Active Substance: ABATACEPT
     Indication: PRODUCT USED FOR UNKNOWN INDICATION
     Dosage: 125 MG, QWK
     Route: 065
  9. HYDROCODONE [Concomitant]
     Active Substance: HYDROCODONE
     Indication: PAIN
     Dosage: 10MG BY MOUTH AS NEEDED 2-4 PER DAY
     Dates: start: 201401

REACTIONS (11)
  - Gait disturbance [Unknown]
  - Rheumatoid arthritis [Unknown]
  - Pneumonia [Unknown]
  - Therapeutic product effect decreased [Unknown]
  - Peripheral swelling [Recovering/Resolving]
  - Drug ineffective [Unknown]
  - Immunodeficiency [Unknown]
  - Asthenia [Unknown]
  - Pain in extremity [Not Recovered/Not Resolved]
  - Grip strength decreased [Not Recovered/Not Resolved]
  - Pain [Unknown]

NARRATIVE: CASE EVENT DATE: 2016
